FAERS Safety Report 20377756 (Version 2)
Quarter: 2022Q1

REPORT INFORMATION
  Report Type: Report from Study
  Country: IT (occurrence: None)
  Receive Date: 20220126
  Receipt Date: 20220222
  Transmission Date: 20220423
  Serious: Yes (Disabling, Other)
  Sender: FDA-Public Use
  Company Number: 2022A036994

PATIENT
  Age: 46 Year
  Sex: Female

DRUGS (6)
  1. LYNPARZA [Suspect]
     Active Substance: OLAPARIB
     Indication: Ovarian cancer
     Dosage: ABOUT 4 WEEKS 600.0MG UNKNOWN
     Route: 048
     Dates: start: 20211230
  2. LYNPARZA [Suspect]
     Active Substance: OLAPARIB
     Indication: Ovarian cancer
     Dosage: 450.0MG UNKNOWN
     Route: 048
  3. LYNPARZA [Suspect]
     Active Substance: OLAPARIB
     Indication: Ovarian cancer
     Dosage: UNKNOWN
     Route: 048
     Dates: start: 20220210
  4. BEVACIZUMAB [Suspect]
     Active Substance: BEVACIZUMAB
     Indication: Ovarian cancer
     Route: 065
  5. CARBOPLATIN [Concomitant]
     Active Substance: CARBOPLATIN
     Route: 065
     Dates: start: 20210623, end: 20211223
  6. PACLITAXEL [Concomitant]
     Active Substance: PACLITAXEL
     Dates: start: 20210623, end: 20211223

REACTIONS (4)
  - Arthralgia [Not Recovered/Not Resolved]
  - Movement disorder [Not Recovered/Not Resolved]
  - Fibromyalgia [Not Recovered/Not Resolved]
  - Off label use [Unknown]

NARRATIVE: CASE EVENT DATE: 20220101
